FAERS Safety Report 14410699 (Version 1)
Quarter: 2018Q1

REPORT INFORMATION
  Report Type: Report from Study
  Country: ES (occurrence: ES)
  Receive Date: 20180119
  Receipt Date: 20180119
  Transmission Date: 20180509
  Serious: Yes (Hospitalization)
  Sender: FDA-Public Use
  Company Number: PHHO2013ES011248

PATIENT
  Age: 55 Year
  Sex: Male
  Weight: 57 kg

DRUGS (5)
  1. PANTOPRAZOL [Concomitant]
     Active Substance: PANTOPRAZOLE SODIUM
     Indication: PRODUCT USED FOR UNKNOWN INDICATION
     Dosage: 40 MG, UNK
  2. LDK378 [Suspect]
     Active Substance: CERITINIB
     Dosage: 600 MG, UNK
     Route: 048
     Dates: start: 20130902
  3. FORTECORTIN [Concomitant]
     Active Substance: DEXAMETHASONE
     Indication: PRODUCT USED FOR UNKNOWN INDICATION
     Dosage: 4 MG PER 8 HOURS
     Route: 048
  4. FORTECORTIN [Concomitant]
     Active Substance: DEXAMETHASONE
     Dosage: DOSE REDUCED
     Route: 048
  5. LDK378 [Suspect]
     Active Substance: CERITINIB
     Indication: NON-SMALL CELL LUNG CANCER
     Dosage: 750 MG, UNK
     Route: 048
     Dates: start: 20130724, end: 20130828

REACTIONS (1)
  - Nausea [Recovered/Resolved]

NARRATIVE: CASE EVENT DATE: 20130828
